FAERS Safety Report 15546716 (Version 1)
Quarter: 2018Q4

REPORT INFORMATION
  Report Type: Spontaneous
  Country: US (occurrence: US)
  Receive Date: 20181024
  Receipt Date: 20181024
  Transmission Date: 20190205
  Serious: Yes (Other)
  Sender: FDA-Public Use
  Company Number: None

PATIENT
  Age: 43 Year
  Sex: Female
  Weight: 72 kg

DRUGS (3)
  1. VENLAFAXINE HCL ER CAPSULES, 37.5 MG. MANUFACTURED IN ISRAEL [Suspect]
     Active Substance: VENLAFAXINE HYDROCHLORIDE
     Indication: ANXIETY
     Dosage: ?          QUANTITY:1 CAPSULE(S);?
     Route: 048
  2. SPIRONOLACTONE. [Concomitant]
     Active Substance: SPIRONOLACTONE
  3. VENLAFAXINE HCL ER CAPSULES, 37.5 MG. MANUFACTURED IN ISRAEL [Suspect]
     Active Substance: VENLAFAXINE HYDROCHLORIDE
     Indication: DEPRESSION
     Dosage: ?          QUANTITY:1 CAPSULE(S);?
     Route: 048

REACTIONS (6)
  - Product quality issue [None]
  - Fatigue [None]
  - Influenza like illness [None]
  - Withdrawal syndrome [None]
  - Dizziness [None]
  - Drug effect decreased [None]

NARRATIVE: CASE EVENT DATE: 20181001
